FAERS Safety Report 4278616-5 (Version None)
Quarter: 2004Q1

REPORT INFORMATION
  Report Type: 
  Country: None (occurrence: None)
  Receive Date: 20040122
  Receipt Date: 20040122
  Transmission Date: 20041129
  Serious: Yes (Other)
  Sender: FDA-Public Use
  Company Number: None

PATIENT
  Sex: Female
  Weight: 90.7194 kg

DRUGS (1)
  1. VICODIN ES [Suspect]
     Indication: POSTOPERATIVE ANALGESIA
     Dosage: 1-2 TABLET 4-6 HOURS ORAL
     Route: 048
     Dates: start: 20030830, end: 20031108

REACTIONS (3)
  - DRUG EFFECT DECREASED [None]
  - MEDICATION ERROR [None]
  - PHARMACEUTICAL PRODUCT COMPLAINT [None]
